FAERS Safety Report 13031620 (Version 1)
Quarter: 2016Q4

REPORT INFORMATION
  Report Type: Spontaneous
  Country: FR (occurrence: FR)
  Receive Date: 20161215
  Receipt Date: 20161215
  Transmission Date: 20170207
  Serious: Yes (Life-Threatening)
  Sender: FDA-Public Use
  Company Number: FR-PFIZER INC-2898315

PATIENT
  Age: 53 Year
  Sex: Male
  Weight: 65 kg

DRUGS (2)
  1. DEBRIDAT [Suspect]
     Active Substance: TRIMEBUTINE MALEATE
     Indication: ABDOMINAL PAIN
     Dosage: UNK
  2. ATRACURIUM BESILATE [Suspect]
     Active Substance: ATRACURIUM BESYLATE
     Indication: ABDOMINAL PAIN
     Dosage: 2 DF, SINGLE
     Route: 042
     Dates: start: 20150318, end: 20150318

REACTIONS (3)
  - Drug dispensing error [Recovered/Resolved]
  - Respiratory arrest [Recovered/Resolved]
  - Wrong drug administered [Recovered/Resolved]

NARRATIVE: CASE EVENT DATE: 20150318
